FAERS Safety Report 24369254 (Version 1)
Quarter: 2024Q3

REPORT INFORMATION
  Report Type: Report from Study
  Country: US (occurrence: US)
  Receive Date: 20240927
  Receipt Date: 20240927
  Transmission Date: 20241016
  Serious: No
  Sender: ROCHE
  Company Number: US-ROCHE-2781426

PATIENT
  Age: 57 Year
  Sex: Female

DRUGS (6)
  1. LUCENTIS [Suspect]
     Active Substance: RANIBIZUMAB
     Indication: Neovascular age-related macular degeneration
     Dosage: DOSE: 0.5 MG/0.05 ML
     Route: 050
  2. LUCENTIS [Suspect]
     Active Substance: RANIBIZUMAB
     Indication: Choroidal neovascularisation
  3. LUCENTIS [Suspect]
     Active Substance: RANIBIZUMAB
     Indication: Retinal telangiectasia
  4. LUCENTIS [Suspect]
     Active Substance: RANIBIZUMAB
     Indication: Vitreous opacities
  5. LUCENTIS [Suspect]
     Active Substance: RANIBIZUMAB
     Indication: Ocular hypertension
  6. LUCENTIS [Suspect]
     Active Substance: RANIBIZUMAB
     Indication: Vitreous degeneration

REACTIONS (3)
  - Fatigue [Unknown]
  - Myalgia [Unknown]
  - Vision blurred [Unknown]
